FAERS Safety Report 12286394 (Version 2)
Quarter: 2016Q2

REPORT INFORMATION
  Report Type: Spontaneous
  Country: US (occurrence: US)
  Receive Date: 20160420
  Receipt Date: 20160502
  Transmission Date: 20160815
  Serious: No
  Sender: FDA-Public Use
  Company Number: US-PFIZER INC-2016223317

PATIENT
  Age: 73 Year
  Sex: Female
  Weight: 82 kg

DRUGS (18)
  1. FIBERCON [Suspect]
     Active Substance: CALCIUM POLYCARBOPHIL
     Indication: CONSTIPATION
  2. PROTONIX [Suspect]
     Active Substance: PANTOPRAZOLE SODIUM
     Indication: GASTROOESOPHAGEAL REFLUX DISEASE
     Dosage: 40 MG, 1X/DAY IN AM
     Route: 048
  3. CALCIUM CARBONATE/CALCIUM CITRATE/CALCIUM PHOSPHATE/CHOLECALCIFEROL/VITAMIN D [Suspect]
     Active Substance: CALCIUM CARBONATE\CALCIUM CITRATE\CALCIUM PHOSPHATE\CHOLECALCIFEROL\VITAMIN D
     Indication: BLOOD CALCIUM DECREASED
     Dosage: 2 DF1200MG/100C, 1X/DAY AT LUNCH
  4. CREON [Suspect]
     Active Substance: PANCRELIPASE AMYLASE\PANCRELIPASE LIPASE\PANCRELIPASE PROTEASE
     Indication: PANCREATIC DISORDER
     Dosage: 12000 IU, 3X/DAY
     Route: 048
  5. TOPAMAX [Suspect]
     Active Substance: TOPIRAMATE
     Indication: SEIZURE
     Dosage: 50 MG, 2X/DAY IN AM AND IN PM
     Route: 048
  6. LOMOTIL [Suspect]
     Active Substance: ATROPINE SULFATE\DIPHENOXYLATE HYDROCHLORIDE
     Indication: DIARRHOEA
     Dosage: UNK UNK, AS NEEDED
     Route: 048
  7. ZETIA [Suspect]
     Active Substance: EZETIMIBE
     Indication: BLOOD CHOLESTEROL ABNORMAL
     Dosage: 10 MG, 1X/DAY AT BEDTIME
     Route: 048
  8. LASIX [Suspect]
     Active Substance: FUROSEMIDE
     Indication: FLUID RETENTION
     Dosage: 20 MG, AS NEEDED
     Route: 048
  9. FIBERCON [Suspect]
     Active Substance: CALCIUM POLYCARBOPHIL
     Indication: DIARRHOEA
     Dosage: 2 DF, DAILY
     Route: 048
     Dates: start: 20160412, end: 20160416
  10. TOPAMAX [Suspect]
     Active Substance: TOPIRAMATE
     Indication: MIGRAINE
  11. ABILIFY [Suspect]
     Active Substance: ARIPIPRAZOLE
     Indication: BIPOLAR DISORDER
     Dosage: 5 MG, 1X/DAY IN THE MORNING
     Route: 048
  12. PROAMATINE [Suspect]
     Active Substance: MIDODRINE HYDROCHLORIDE
     Indication: BLOOD PRESSURE ABNORMAL
     Dosage: 5 MG, 3X/DAY
     Route: 048
  13. ASPIRIN. [Suspect]
     Active Substance: ASPIRIN
     Dosage: 325 MG, 1X/DAY
     Route: 048
     Dates: start: 2009
  14. ATIVAN [Suspect]
     Active Substance: LORAZEPAM
     Indication: ANXIETY
     Dosage: 1 MG, 3X/DAY
     Route: 048
  15. KLOR-CON [Suspect]
     Active Substance: POTASSIUM CHLORIDE
     Indication: ELECTROLYTE SUBSTITUTION THERAPY
     Dosage: M20, 1X/DAY
     Route: 048
  16. ZOFRAN [Suspect]
     Active Substance: ONDANSETRON HYDROCHLORIDE
     Indication: NAUSEA
     Dosage: 8 MG, AS NEEDED
     Route: 048
  17. EFFEXOR XR [Suspect]
     Active Substance: VENLAFAXINE HYDROCHLORIDE
     Indication: DEPRESSION
     Dosage: 75 MG, 1X/DAY IN AM
     Route: 048
  18. ARICEPT [Suspect]
     Active Substance: DONEPEZIL HYDROCHLORIDE
     Indication: MEMORY IMPAIRMENT
     Dosage: 10 MG, 1X/DAY AT BEDTIME
     Route: 048

REACTIONS (1)
  - Muscle twitching [Unknown]
